FAERS Safety Report 7717500-9 (Version None)
Quarter: 2011Q3

REPORT INFORMATION
  Report Type: 
  Country: None (occurrence: None)
  Receive Date: 20110830
  Receipt Date: 20110822
  Transmission Date: 20111222
  Serious: Yes (Death, Other)
  Sender: FDA-Public Use
  Company Number: JP-AMGEN-JPNCT2011032722

PATIENT
  Age: 55 Year
  Sex: Female
  Weight: 47 kg

DRUGS (19)
  1. CORTICOSTEROIDS [Concomitant]
     Indication: PROPHYLAXIS
     Dosage: UNK
     Route: 065
  2. FLUOROURACIL [Concomitant]
     Route: 040
     Dates: start: 20101101, end: 20101222
  3. FLUOROURACIL [Concomitant]
     Route: 041
     Dates: start: 20101101, end: 20101222
  4. JU-KAMA [Concomitant]
     Dosage: UNK
     Route: 048
  5. TOPOTECAN [Suspect]
     Indication: COLORECTAL CANCER
     Route: 041
     Dates: start: 20101101
  6. LEUCOVORIN CALCIUM [Concomitant]
     Route: 041
     Dates: start: 20101101, end: 20101222
  7. PANITUMUMAB [Suspect]
     Indication: COLORECTAL CANCER
     Dosage: 6 MG/KG, Q2WK
     Route: 041
     Dates: start: 20101101, end: 20110112
  8. FLUOROURACIL [Concomitant]
     Route: 040
     Dates: start: 20110112, end: 20110112
  9. LEUCOVORIN CALCIUM [Concomitant]
     Indication: COLORECTAL CANCER
     Route: 041
     Dates: start: 20101101
  10. LEUCOVORIN CALCIUM [Concomitant]
     Route: 041
     Dates: start: 20110112, end: 20110112
  11. TOPOTECAN [Suspect]
     Route: 041
  12. TOPOTECAN [Suspect]
     Route: 041
     Dates: start: 20101222, end: 20101222
  13. FLUOROURACIL [Concomitant]
     Route: 041
     Dates: start: 20101101
  14. TOPOTECAN [Suspect]
     Route: 041
  15. ANTIHISTAMINES [Concomitant]
     Indication: PROPHYLAXIS
     Dosage: UNK
     Route: 065
  16. DEPAS [Concomitant]
     Dosage: UNK
     Route: 048
  17. OXYCONTIN [Concomitant]
     Dosage: UNK
     Route: 048
  18. FLUOROURACIL [Concomitant]
     Indication: COLORECTAL CANCER
     Route: 041
     Dates: start: 20101101
  19. FLUOROURACIL [Concomitant]
     Route: 041
     Dates: start: 20110112, end: 20110112

REACTIONS (2)
  - DECREASED APPETITE [None]
  - COLORECTAL CANCER [None]
